FAERS Safety Report 9174638 (Version 5)
Quarter: 2013Q2

REPORT INFORMATION
  Report Type: Report from Study
  Country: US (occurrence: US)
  Receive Date: 20130320
  Receipt Date: 20130419
  Transmission Date: 20140414
  Serious: No
  Sender: FDA-Public Use
  Company Number: US-VERTEX PHARMACEUTICALS INC.-2013-003812

PATIENT
  Age: 59 Year
  Sex: Female
  Weight: 80 kg

DRUGS (4)
  1. VX-950 (TELAPREVIR) [Suspect]
     Indication: HEPATITIS C
     Dosage: 750 MG, TID
     Route: 048
     Dates: start: 20130301
  2. COPEGUS [Suspect]
     Indication: HEPATITIS C
     Dosage: 600 MG, BID
     Dates: start: 20130301, end: 201303
  3. COPEGUS [Suspect]
     Dosage: 400 MG, BID
     Dates: start: 201303
  4. PEGASYS [Suspect]
     Indication: HEPATITIS C
     Dosage: 180 ?G, QW
     Route: 058
     Dates: start: 20130301

REACTIONS (7)
  - Blood glucose increased [Not Recovered/Not Resolved]
  - Visual impairment [Not Recovered/Not Resolved]
  - Weight increased [Not Recovered/Not Resolved]
  - Fatigue [Not Recovered/Not Resolved]
  - Haemoglobin decreased [Not Recovered/Not Resolved]
  - Pruritus [Not Recovered/Not Resolved]
  - Nausea [Recovered/Resolved]
